FAERS Safety Report 9433310 (Version 2)
Quarter: 2013Q3

REPORT INFORMATION
  Report Type: Spontaneous
  Country: US (occurrence: US)
  Receive Date: 20130731
  Receipt Date: 20130911
  Transmission Date: 20140515
  Serious: No
  Sender: FDA-Public Use
  Company Number: US-B.I. PHARMACEUTICALS,INC./RIDGEFIELD-2013-BI-22074BP

PATIENT
  Age: 80 Year
  Sex: Female
  Weight: 84.37 kg

DRUGS (30)
  1. SPIRIVA [Suspect]
     Indication: CHRONIC OBSTRUCTIVE PULMONARY DISEASE
     Dosage: 18 MCG
     Route: 055
     Dates: start: 2010, end: 2010
  2. SPIRIVA [Suspect]
     Dosage: 18 MCG
     Route: 055
     Dates: start: 20130706, end: 20130723
  3. FLOVENT [Concomitant]
     Indication: CHRONIC OBSTRUCTIVE PULMONARY DISEASE
     Dosage: FORMULATION: INHALATION AEROSOL
     Dates: start: 2010
  4. LANTUS [Concomitant]
     Indication: DIABETES MELLITUS
     Dosage: FORMULATION: SUBCUTANEOUS; STRENGTH: 40 UNITS; DAILY DOSE: 40 UNITS
     Route: 058
     Dates: start: 2004
  5. LEVOTHYROXINE [Concomitant]
     Indication: THYROID DISORDER
     Dosage: 100 MCG
     Route: 048
     Dates: start: 2012
  6. NEXIUM [Concomitant]
     Indication: GASTROOESOPHAGEAL REFLUX DISEASE
     Dosage: 40 MG
     Route: 048
     Dates: start: 2009
  7. PROZAC [Concomitant]
     Indication: DEPRESSION
     Dosage: 20 MG
     Route: 048
     Dates: start: 1993
  8. SPIRONOLACTONE [Concomitant]
     Indication: OEDEMA
     Dosage: 12.5 MG
     Route: 048
     Dates: start: 2009
  9. SYMBICORT 160-4.5MCG/ACT [Concomitant]
     Dosage: 2 (TWO) PUFFS
     Route: 055
     Dates: start: 20130814
  10. ADVAIR DISKUS 250-50MCG/DOSE AERO POW BR ACT [Concomitant]
     Dosage: 1 AERO POW BR ACT
     Route: 055
     Dates: start: 20130724
  11. NOVOLOG MIX 70/30 FLEX PEN (70-30) 100UNIT/ML [Concomitant]
     Dosage: 2 UNITS
     Route: 058
  12. LISINOPRIL 10MG [Concomitant]
     Route: 048
  13. NOVOFINE 30G ? 8 MM DISC [Concomitant]
     Dosage: 1 MISC DAILY.
     Dates: start: 20121022
  14. SPIRONOLACTONE 25MG [Concomitant]
     Dosage: STARTED 1/2 TABLET DAILY
     Route: 048
  15. LANTUS SOLOSTAR 100UNIT/ML [Concomitant]
     Dosage: 24 UNIT AT BEDTIME STRENGTH 100 UNIT/ML SOLUTION
     Route: 058
  16. NEXIUM 40 MG CAPSULE DR [Concomitant]
     Dosage: 1 CAPSULE DR
     Route: 048
     Dates: start: 20130227
  17. SYNTHROID [Concomitant]
     Dosage: 100 MCG
     Route: 048
  18. FEXOFENADINE HCL 60MG TABLET [Concomitant]
     Dosage: 120 MG
     Route: 048
     Dates: start: 20130528
  19. PROZAC [Concomitant]
     Dosage: 20 MG
     Route: 048
     Dates: start: 20121023
  20. AZITHROMYCIN [Concomitant]
     Dosage: Z-PAK DOSING: TAKE 2 TABS INITIALLY, THEN 1 TAB FOR NEXT 4 DAYS.
     Route: 048
     Dates: start: 20130701
  21. LANTUS 100UNIT/ML [Concomitant]
     Dosage: 40 U
     Route: 058
     Dates: start: 20130415
  22. LEVOTHYROXINE SODIUM 75MCG [Concomitant]
     Dosage: 75 MCG
     Route: 048
  23. PROZAC 20MG TABLET [Concomitant]
     Dosage: 20 MG
     Route: 048
     Dates: start: 20111025
  24. XOPENEX 1.25MG/3MLNEBULIZED SOLN [Concomitant]
     Dosage: 1 NEBULIZED SOLN
     Route: 055
     Dates: start: 20130218
  25. XOPENEX 1.25MG/3MLNEBULIZED SOLN [Concomitant]
     Dosage: 1 NEBULIZED SOLN
     Route: 055
     Dates: start: 20130122
  26. HYDROXYZINE HCL [Concomitant]
     Dosage: 100 MG
     Route: 048
     Dates: start: 20121108
  27. TESSALON [Concomitant]
     Dosage: 600 MG
     Route: 048
     Dates: start: 20130701
  28. XOPENEX HFA 45MCG/ACT [Concomitant]
     Dosage: 1 PUFF EVERY THREE HOURS
     Route: 055
     Dates: start: 20130415
  29. RELST [Concomitant]
  30. SIGULAIR [Concomitant]
     Dosage: 1 TABLET DAILY
     Route: 048
     Dates: start: 20130227

REACTIONS (4)
  - Stomatitis [Not Recovered/Not Resolved]
  - Dysphagia [Not Recovered/Not Resolved]
  - Oral pain [Not Recovered/Not Resolved]
  - Stomatitis [Recovered/Resolved]
